FAERS Safety Report 7352262-9 (Version None)
Quarter: 2011Q1

REPORT INFORMATION
  Report Type: 
  Country: None (occurrence: None)
  Receive Date: 20110315
  Receipt Date: 20110302
  Transmission Date: 20110831
  Serious: Yes (Hospitalization)
  Sender: FDA-Public Use
  Company Number: IT-CELGENEUS-083-C5013-11021582

PATIENT
  Sex: Female
  Weight: 68 kg

DRUGS (7)
  1. PREDNISONE TAB [Suspect]
     Indication: MULTIPLE MYELOMA
     Dosage: 135 MILLIGRAM
     Route: 065
     Dates: start: 20101116
  2. MELPHALAN [Suspect]
     Indication: MULTIPLE MYELOMA
     Dosage: 18 MILLIGRAM
     Route: 065
     Dates: start: 20101116
  3. PREDNISONE TAB [Suspect]
     Dosage: 135 MILLIGRAM
     Route: 065
     Dates: start: 20101118, end: 20110122
  4. ANTITHROMBOTIC AGENTS [Concomitant]
     Route: 065
     Dates: end: 20110205
  5. MELPHALAN [Suspect]
     Dosage: 18 MILLIGRAM
     Route: 065
     Dates: start: 20110118, end: 20110122
  6. THALIDOMIDE [Suspect]
     Dosage: 100 MILLIGRAM
     Route: 048
     Dates: start: 20110118, end: 20110205
  7. THALIDOMIDE [Suspect]
     Indication: MULTIPLE MYELOMA
     Dosage: 200 MILLIGRAM
     Route: 048
     Dates: start: 20101116

REACTIONS (1)
  - HAEMORRHAGE [None]
